FAERS Safety Report 8048640-5 (Version None)
Quarter: 2011Q4

REPORT INFORMATION
  Report Type: 
  Country: None (occurrence: None)
  Receive Date: 20111209
  Receipt Date: 20111018
  Transmission Date: 20120403
  Serious: No
  Sender: FDA-Public Use
  Company Number: 2011SP049198

PATIENT
  Age: 56 Year
  Sex: Female
  Weight: 65.7716 kg

DRUGS (9)
  1. RIBAVIRIN [Suspect]
     Indication: PRODUCT USED FOR UNKNOWN INDICATION
  2. TOPROL-XL [Concomitant]
  3. CALCIUM CARBONATE [Concomitant]
  4. ASCORBIC ACID [Concomitant]
  5. CENTRUM [Concomitant]
  6. POTASSIUM CHLORIDE [Concomitant]
  7. PEG-INTRON [Suspect]
     Indication: PRODUCT USED FOR UNKNOWN INDICATION
  8. HYDROCHLOROTHIAZIDE [Concomitant]
  9. VICTRELIS [Suspect]
     Indication: PRODUCT USED FOR UNKNOWN INDICATION
     Dosage: 200 MG;TID;
     Dates: start: 20110702, end: 20110916

REACTIONS (2)
  - THERAPEUTIC PRODUCT INEFFECTIVE [None]
  - RASH [None]
